FAERS Safety Report 5844181-1 (Version None)
Quarter: 2008Q3

REPORT INFORMATION
  Report Type: 
  Country: None (occurrence: None)
  Receive Date: 20080813
  Receipt Date: 20080801
  Transmission Date: 20090109
  Serious: Yes (Hospitalization, Other)
  Sender: FDA-Public Use
  Company Number: US-PFIZER INC-2008060143

PATIENT
  Sex: Female
  Weight: 74 kg

DRUGS (5)
  1. GENOTROPIN [Suspect]
     Indication: HYPOPITUITARISM
     Route: 058
     Dates: start: 20010901, end: 20080625
  2. OVCON-35 [Concomitant]
     Route: 048
     Dates: start: 20050330, end: 20080626
  3. DDAVP [Concomitant]
     Route: 048
  4. SYNTHROID [Concomitant]
     Route: 048
  5. CORTEF [Concomitant]
     Route: 048

REACTIONS (1)
  - SUBCLAVIAN VEIN THROMBOSIS [None]
